FAERS Safety Report 4701720-1 (Version None)
Quarter: 2005Q2

REPORT INFORMATION
  Report Type: 
  Country: None (occurrence: None)
  Receive Date: 20050627
  Receipt Date: 20050610
  Transmission Date: 20051028
  Serious: Yes (Other)
  Sender: FDA-Public Use
  Company Number: 2005090912

PATIENT
  Age: 75 Year
  Sex: Male

DRUGS (3)
  1. SULPERAZONE                                   (SULBACTAM, CEFOPERAZONE [Suspect]
     Indication: PNEUMONIA
     Dosage: 4 GRAM (2 GRAM, BID), INTRAVENOUS
     Route: 042
     Dates: start: 20050531, end: 20050608
  2. AMIKACIN [Concomitant]
  3. HISTAC (RANITIDINE) [Concomitant]

REACTIONS (3)
  - DRUG LEVEL DECREASED [None]
  - INTERNATIONAL NORMALISED RATIO INCREASED [None]
  - RENAL FAILURE [None]
